FAERS Safety Report 4427705-0 (Version None)
Quarter: 2004Q3

REPORT INFORMATION
  Report Type: 
  Country: None (occurrence: None)
  Receive Date: 20040812
  Receipt Date: 20040809
  Transmission Date: 20050211
  Serious: Yes (Other)
  Sender: FDA-Public Use
  Company Number: 2002-11-1074

PATIENT
  Age: 37 Year
  Sex: Male
  Weight: 64 kg

DRUGS (6)
  1. REBETOL [Suspect]
     Indication: HEPATITIS C
     Dosage: 800 MG QD ORAL
     Route: 048
     Dates: start: 20040311, end: 20040825
  2. INTRON A [Suspect]
     Indication: HEPATITIS C
     Dosage: SEE IMAGE
     Route: 030
     Dates: start: 20020311, end: 20020324
  3. INTRON A [Suspect]
     Indication: HEPATITIS C
     Dosage: SEE IMAGE
     Route: 030
     Dates: start: 20020325, end: 20030401
  4. DICLOFENAC SODIUM [Concomitant]
  5. ALLOPURINOL [Concomitant]
  6. TEPRENONE [Concomitant]

REACTIONS (3)
  - AZOOSPERMIA [None]
  - PYREXIA [None]
  - TESTICULAR DISORDER [None]
